FAERS Safety Report 9217232 (Version 2)
Quarter: 2013Q4

REPORT INFORMATION
  Report Type: Spontaneous
  Country: DE (occurrence: DE)
  Receive Date: 20130408
  Receipt Date: 20131022
  Transmission Date: 20140711
  Serious: Yes (Other)
  Sender: FDA-Public Use
  Company Number: DE-UCBSA-082100

PATIENT
  Sex: Male

DRUGS (2)
  1. KEPPRA [Suspect]
  2. KEPPRA [Suspect]
     Dosage: DOWN TITRATED

REACTIONS (1)
  - Thrombocytopenia [Recovered/Resolved]
